FAERS Safety Report 22379093 (Version 1)
Quarter: 2023Q2

REPORT INFORMATION
  Report Type: Spontaneous
  Country: US (occurrence: US)
  Receive Date: 20230529
  Receipt Date: 20230529
  Transmission Date: 20230721
  Serious: No
  Sender: FDA-Public Use
  Company Number: US-GALDERMA-US2023007139

PATIENT

DRUGS (9)
  1. PROACTIV MD ADAPALENE ACNE TREATMENT [Suspect]
     Active Substance: ADAPALENE
     Indication: Acne
     Dosage: 1 DOSAGE FORM, BID, JUST A DAB, ENOUGH TO KIND OF RUB ON HIS FACE
     Route: 061
     Dates: start: 202301
  2. PROACTIV MD ADAPALENE ACNE TREATMENT [Suspect]
     Active Substance: ADAPALENE
     Dosage: 1 DOSAGE FORM, QD, TWICE A DAY JUST A DAB, ENOUGH TO KIND OF RUB ON HIS FACE
     Route: 061
  3. PROACTIV MD ADAPALENE ACNE TREATMENT [Suspect]
     Active Substance: ADAPALENE
     Dosage: 1 DOSAGE FORM, QOD, EVERY OTHER DAY JUST A DAB, ENOUGH TO KIND OF RUB ON HIS FACE
     Route: 061
  4. Proactiv MD Ultra Hydrating Moisturizer [Concomitant]
     Indication: Acne
     Dosage: 1 DOSAGE FORM, BID, PROBABLY A DIME SIZE
     Route: 061
     Dates: start: 202301
  5. Proactiv MD Ultra Hydrating Moisturizer [Concomitant]
     Dosage: 1 DOSAGE FORM, QD, PROBABLY A DIME SIZE
     Route: 061
  6. Proactiv MD Ultra Hydrating Moisturizer [Concomitant]
     Dosage: 1 DOSAGE FORM, QOD, PROBABLY A DIME SIZE
     Route: 061
  7. Proactiv MD Ultra Gentle Cleanser [Concomitant]
     Indication: Acne
     Dosage: 1 DOSAGE FORM, BID, PROBABLY A DIME SIZE
     Route: 061
     Dates: start: 202301
  8. Proactiv MD Ultra Gentle Cleanser [Concomitant]
     Dosage: 1 DOSAGE FORM, QD, PROBABLY A DIME SIZE
     Route: 061
  9. Proactiv MD Ultra Gentle Cleanser [Concomitant]
     Dosage: 1 DOSAGE FORM, QOD, PROBABLY A DIME SIZE
     Route: 061

REACTIONS (8)
  - Rash macular [Recovering/Resolving]
  - Pain of skin [Recovering/Resolving]
  - Skin irritation [Recovering/Resolving]
  - Skin burning sensation [Recovering/Resolving]
  - Dry skin [Recovering/Resolving]
  - Underdose [Recovered/Resolved]
  - Overdose [Recovered/Resolved]
  - Inappropriate schedule of product administration [Recovered/Resolved]

NARRATIVE: CASE EVENT DATE: 20230101
